FAERS Safety Report 15060562 (Version 2)
Quarter: 2018Q2

REPORT INFORMATION
  Report Type: Spontaneous
  Country: US (occurrence: US)
  Receive Date: 20180625
  Receipt Date: 20180628
  Transmission Date: 20180711
  Serious: Yes (Death, Other)
  Sender: FDA-Public Use
  Company Number: US-PFIZER INC-2018254407

PATIENT
  Age: 59 Year
  Sex: Female

DRUGS (4)
  1. TAMOXIFEN [Suspect]
     Active Substance: TAMOXIFEN
     Indication: BREAST CANCER
     Dosage: UNK (COMPLETED 5 YEARS OF TAMOXIFEN IN 2001)
     Dates: end: 2001
  2. 5 FLUOROURACIL [Suspect]
     Active Substance: FLUOROURACIL
     Indication: BREAST CANCER
     Dosage: UNK, CYCLIC (COMPLETED SIX CYCLES)
     Dates: start: 199505
  3. CYTOXAN [Suspect]
     Active Substance: CYCLOPHOSPHAMIDE
     Indication: BREAST CANCER
     Dosage: UNK, CYCLIC (COMPLETED SIX CYCLES)
     Route: 048
     Dates: start: 199505
  4. METHOTREXATE SODIUM. [Suspect]
     Active Substance: METHOTREXATE SODIUM
     Indication: BREAST CANCER
     Dosage: UNK, CYCLIC (COMPLETED SIX CYCLES)
     Dates: start: 199505

REACTIONS (1)
  - Acute myeloid leukaemia [Unknown]
